FAERS Safety Report 4741674-5 (Version None)
Quarter: 2005Q3

REPORT INFORMATION
  Report Type: 
  Country: None (occurrence: None)
  Receive Date: 20050801
  Receipt Date: 20050625
  Transmission Date: 20060218
  Serious: No
  Sender: FDA-Public Use
  Company Number: 2005PV000159

PATIENT
  Age: 63 Year
  Sex: Female

DRUGS (8)
  1. BYETTA [Suspect]
     Indication: DIABETES MELLITUS NON-INSULIN-DEPENDENT
     Dosage: SEE IMAGE
     Route: 058
     Dates: start: 20050614, end: 20050621
  2. BYETTA [Suspect]
     Indication: DIABETES MELLITUS NON-INSULIN-DEPENDENT
     Dosage: SEE IMAGE
     Route: 058
     Dates: start: 20050622
  3. METFORMIN [Concomitant]
  4. ACTOS [Concomitant]
  5. SYNTHROID [Concomitant]
  6. HYZAAR [Concomitant]
  7. SINGULAIR [Concomitant]
  8. NASONEX [Concomitant]

REACTIONS (4)
  - ANXIETY [None]
  - INAPPROPRIATE SCHEDULE OF DRUG ADMINISTRATION [None]
  - MEDICATION ERROR [None]
  - RASH ERYTHEMATOUS [None]
